FAERS Safety Report 8773755 (Version 1)
Quarter: 2012Q4

REPORT INFORMATION
  Report Type: 
  Country: IT (occurrence: IT)
  Receive Date: 20120907
  Receipt Date: 20120907
  Transmission Date: 20130627
  Serious: Yes (Hospitalization)
  Sender: FDA-Public Use
  Company Number: IT-PFIZER INC-2012219543

PATIENT
  Age: 74 Year
  Sex: Female

DRUGS (1)
  1. LYRICA [Suspect]
     Dosage: 100 mg, daily
     Route: 048
     Dates: start: 20120621, end: 20120623

REACTIONS (7)
  - Aggression [Recovering/Resolving]
  - Dissociation [Recovering/Resolving]
  - Dry mouth [Recovering/Resolving]
  - Rash [Recovering/Resolving]
  - Balance disorder [Recovering/Resolving]
  - Oropharyngeal pain [Recovering/Resolving]
  - Hallucination [Recovering/Resolving]
